FAERS Safety Report 13231806 (Version 1)
Quarter: 2017Q1

REPORT INFORMATION
  Report Type: Report from Study
  Country: CA (occurrence: CA)
  Receive Date: 20170214
  Receipt Date: 20170214
  Transmission Date: 20170428
  Serious: Yes (Other)
  Sender: FDA-Public Use
  Company Number: PHHY2015CA125689

PATIENT
  Age: 4 Month
  Sex: Female
  Weight: 7 kg

DRUGS (4)
  1. DABRAFENIB [Suspect]
     Active Substance: DABRAFENIB
     Dosage: 15 MG, BID
     Route: 048
     Dates: start: 20150716
  2. URITAB [Concomitant]
     Indication: PRODUCT USED FOR UNKNOWN INDICATION
     Dosage: UNK
     Route: 065
     Dates: start: 20160316
  3. URITAB [Concomitant]
     Dosage: UNK
     Route: 065
     Dates: start: 20170127
  4. DABRAFENIB [Suspect]
     Active Substance: DABRAFENIB
     Indication: BRAIN NEOPLASM
     Dosage: 12 MG, BID
     Route: 048
     Dates: start: 20150424, end: 20150715

REACTIONS (35)
  - Hyperuricaemia [Unknown]
  - Alanine aminotransferase increased [Recovered/Resolved]
  - Pyrexia [Recovered/Resolved]
  - Hyperkalaemia [Recovered/Resolved]
  - Rash pruritic [Recovered/Resolved]
  - Hypercalcaemia [Recovered/Resolved]
  - Hyperglycaemia [Recovered/Resolved]
  - Eczema [Unknown]
  - Blood alkaline phosphatase increased [Recovered/Resolved]
  - Hypoalbuminaemia [Recovered/Resolved]
  - Tachycardia [Recovered/Resolved]
  - Influenza like illness [Recovered/Resolved]
  - Hyperkalaemia [Unknown]
  - Weight decreased [Recovered/Resolved]
  - Hypophosphataemia [Recovered/Resolved]
  - Electrocardiogram QT prolonged [Recovered/Resolved]
  - Leukocytosis [Recovered/Resolved]
  - Skin hypopigmentation [Unknown]
  - Ascites [Recovered/Resolved]
  - Aspartate aminotransferase increased [Recovered/Resolved]
  - Dry skin [Recovered/Resolved]
  - Tachycardia [Recovered/Resolved]
  - Hyperalbuminaemia [Unknown]
  - Alanine aminotransferase increased [Recovered/Resolved]
  - Rash pruritic [Recovered/Resolved]
  - Hyponatraemia [Recovered/Resolved]
  - Neutropenia [Recovered/Resolved]
  - Lethargy [Unknown]
  - Hyponatraemia [Recovered/Resolved]
  - Product use issue [Unknown]
  - Urine albumin/creatinine ratio increased [Not Recovered/Not Resolved]
  - Pyrexia [Recovered/Resolved]
  - Hyperglycaemia [Recovered/Resolved]
  - Lymphopenia [Recovered/Resolved]
  - Vomiting [Recovered/Resolved]

NARRATIVE: CASE EVENT DATE: 20150424
